FAERS Safety Report 7499140-2 (Version None)
Quarter: 2011Q2

REPORT INFORMATION
  Report Type: 
  Country: None (occurrence: None)
  Receive Date: 20110524
  Receipt Date: 20110214
  Transmission Date: 20111010
  Serious: No
  Sender: FDA-Public Use
  Company Number: US-NOVEN-11US001780

PATIENT
  Age: 14 Year
  Sex: Male

DRUGS (1)
  1. DAYTRANA [Suspect]
     Indication: ATTENTION DEFICIT/HYPERACTIVITY DISORDER
     Dosage: 10 MG, QD M-F
     Route: 062
     Dates: start: 20110210

REACTIONS (4)
  - WRONG TECHNIQUE IN DRUG USAGE PROCESS [None]
  - DECREASED APPETITE [None]
  - DRUG PRESCRIBING ERROR [None]
  - DRUG ADMINISTERED AT INAPPROPRIATE SITE [None]
